FAERS Safety Report 14933798 (Version 1)
Quarter: 2018Q2

REPORT INFORMATION
  Report Type: Spontaneous
  Country: US (occurrence: US)
  Receive Date: 20180524
  Receipt Date: 20180524
  Transmission Date: 20180711
  Serious: No
  Sender: FDA-Public Use
  Company Number: US-TARO-2017TAR00721

PATIENT
  Age: 1 Year
  Sex: Female
  Weight: 8.16 kg

DRUGS (3)
  1. FEVERALL INFANTS [Suspect]
     Active Substance: ACETAMINOPHEN
     Dosage: 80 MG, 3X/DAY
     Route: 054
     Dates: start: 20170824, end: 20170824
  2. FEVERALL INFANTS [Suspect]
     Active Substance: ACETAMINOPHEN
     Dosage: UNK UNK, 1X/DAY
     Route: 054
     Dates: start: 20170825, end: 20170825
  3. FEVERALL INFANTS [Suspect]
     Active Substance: ACETAMINOPHEN
     Indication: PYREXIA
     Dosage: UNK UNK, 1X/DAY
     Route: 054
     Dates: start: 20170823, end: 20170823

REACTIONS (2)
  - Pain [Unknown]
  - Dermatitis diaper [Not Recovered/Not Resolved]

NARRATIVE: CASE EVENT DATE: 20170826
